FAERS Safety Report 22877914 (Version 3)
Quarter: 2024Q1

REPORT INFORMATION
  Report Type: Report from Study
  Country: US (occurrence: US)
  Receive Date: 20230829
  Receipt Date: 20240115
  Transmission Date: 20240410
  Serious: Yes (Other)
  Sender: FDA-Public Use
  Company Number: US-ABBVIE-5383736

PATIENT
  Sex: Male

DRUGS (2)
  1. HUMIRA [Suspect]
     Active Substance: ADALIMUMAB
     Indication: Colitis ulcerative
     Route: 058
  2. HUMIRA [Suspect]
     Active Substance: ADALIMUMAB
     Dosage: FORM STRENGTH: 40 MG?CITRATE FREE
     Route: 058
     Dates: start: 20221111, end: 20230831

REACTIONS (7)
  - Loss of consciousness [Not Recovered/Not Resolved]
  - Immunodeficiency [Recovering/Resolving]
  - Pain [Unknown]
  - Dehydration [Not Recovered/Not Resolved]
  - Foot fracture [Not Recovered/Not Resolved]
  - Device breakage [Not Recovered/Not Resolved]
  - Medical device site infection [Not Recovered/Not Resolved]

NARRATIVE: CASE EVENT DATE: 20230101
